FAERS Safety Report 13347426 (Version 2)
Quarter: 2017Q2

REPORT INFORMATION
  Report Type: Spontaneous
  Country: VE (occurrence: VE)
  Receive Date: 20170317
  Receipt Date: 20170403
  Transmission Date: 20170830
  Serious: Yes (Other)
  Sender: FDA-Public Use
  Company Number: VE-UCBSA-2017010268

PATIENT
  Age: 17 Year
  Sex: Female

DRUGS (6)
  1. LAMICTAL [Concomitant]
     Active Substance: LAMOTRIGINE
     Indication: EPILEPSY
     Dosage: 300 MG Z (200 MG IN MORNING AND 100 MG IN AFTERNOON)
     Route: 048
  2. KEPPRA [Suspect]
     Active Substance: LEVETIRACETAM
     Dosage: DOSE REDUCED
  3. LAMICTAL [Concomitant]
     Active Substance: LAMOTRIGINE
     Dosage: DOSE REDUCED
  4. KEPPRA [Suspect]
     Active Substance: LEVETIRACETAM
     Dosage: 1000 MG, 3X/DAY (TID), (DOSE INCREASE)
     Route: 048
  5. KEPPRA [Suspect]
     Active Substance: LEVETIRACETAM
     Indication: EPILEPSY
     Dosage: 2500 MG Z (1000 MG IN MORNING, 500 MG IN AFTERNOON, 1000 MG IN NIGHT)
     Route: 048
  6. PHENOBARBITAL. [Concomitant]
     Active Substance: PHENOBARBITAL
     Indication: PRODUCT USED FOR UNKNOWN INDICATION
     Dosage: 100 MG

REACTIONS (6)
  - Epilepsy [Recovered/Resolved]
  - Seizure [Unknown]
  - Headache [Not Recovered/Not Resolved]
  - Therapy cessation [Unknown]
  - Drug dose omission [Unknown]
  - Asthenia [Not Recovered/Not Resolved]
